FAERS Safety Report 8871442 (Version 1)
Quarter: 2012Q4

REPORT INFORMATION
  Report Type: Report from Study
  Country: CA (occurrence: CA)
  Receive Date: 20121029
  Receipt Date: 20121029
  Transmission Date: 20130627
  Serious: Yes (Other)
  Sender: FDA-Public Use
  Company Number: CA-JNJFOC-20121011251

PATIENT
  Sex: Male

DRUGS (6)
  1. REMICADE [Suspect]
     Indication: COLITIS ULCERATIVE
     Route: 042
     Dates: start: 20120917, end: 20120917
  2. IMURAN [Concomitant]
     Route: 065
  3. PREDNISONE [Concomitant]
     Route: 065
  4. PENTASA [Concomitant]
     Route: 065
  5. VITAMIN D [Concomitant]
     Route: 065
  6. MULTIVITAMINS [Concomitant]
     Route: 065

REACTIONS (1)
  - Depression [Not Recovered/Not Resolved]
